FAERS Safety Report 4465891-7 (Version None)
Quarter: 2004Q3

REPORT INFORMATION
  Report Type: 
  Country: None (occurrence: None)
  Receive Date: 20040929
  Receipt Date: 20040909
  Transmission Date: 20050211
  Serious: Yes (Other)
  Sender: FDA-Public Use
  Company Number: USA040977733

PATIENT
  Sex: Female

DRUGS (2)
  1. ZYPREXA [Suspect]
  2. SSRI ANTIDEPRESSANT [Concomitant]

REACTIONS (1)
  - LEUKAEMIA RECURRENT [None]
